FAERS Safety Report 25619247 (Version 1)
Quarter: 2025Q3

REPORT INFORMATION
  Report Type: Spontaneous
  Country: EU (occurrence: EU)
  Receive Date: 20250729
  Receipt Date: 20250729
  Transmission Date: 20251021
  Serious: Yes (Life-Threatening)
  Sender: MYLAN
  Company Number: None

PATIENT
  Age: 22 Year
  Sex: Male
  Weight: 60 kg

DRUGS (8)
  1. ALPRAZOLAM [Suspect]
     Active Substance: ALPRAZOLAM
     Indication: Product used for unknown indication
     Dates: start: 20220108, end: 20220108
  2. ALPRAZOLAM [Suspect]
     Active Substance: ALPRAZOLAM
     Route: 048
     Dates: start: 20220108, end: 20220108
  3. ALPRAZOLAM [Suspect]
     Active Substance: ALPRAZOLAM
     Route: 048
     Dates: start: 20220108, end: 20220108
  4. ALPRAZOLAM [Suspect]
     Active Substance: ALPRAZOLAM
     Dates: start: 20220108, end: 20220108
  5. CHLORPROTHIXENE [Suspect]
     Active Substance: CHLORPROTHIXENE
     Indication: Product used for unknown indication
  6. CHLORPROTHIXENE [Suspect]
     Active Substance: CHLORPROTHIXENE
     Route: 048
  7. CHLORPROTHIXENE [Suspect]
     Active Substance: CHLORPROTHIXENE
     Route: 048
  8. CHLORPROTHIXENE [Suspect]
     Active Substance: CHLORPROTHIXENE

REACTIONS (4)
  - Loss of consciousness [Recovering/Resolving]
  - Toxicity to various agents [Recovering/Resolving]
  - Suicide attempt [Recovering/Resolving]
  - Confusional state [Recovering/Resolving]

NARRATIVE: CASE EVENT DATE: 20220108
